FAERS Safety Report 10159559 (Version 1)
Quarter: 2014Q2

REPORT INFORMATION
  Report Type: Report from Study
  Country: FR (occurrence: FR)
  Receive Date: 20140508
  Receipt Date: 20140508
  Transmission Date: 20141212
  Serious: Yes (Hospitalization)
  Sender: FDA-Public Use
  Company Number: FR-ROCHE-1396107

PATIENT
  Age: 73 Year
  Sex: Female

DRUGS (7)
  1. RITUXIMAB [Suspect]
     Indication: RHEUMATOID ARTHRITIS
     Route: 065
     Dates: start: 20090519
  2. RITUXIMAB [Suspect]
     Route: 065
     Dates: start: 20090602, end: 20090831
  3. CORTANCYL [Concomitant]
     Route: 065
  4. ABATACEPT [Concomitant]
     Route: 065
     Dates: start: 20100316
  5. METHOTREXATE [Concomitant]
     Route: 065
     Dates: start: 20100316
  6. METHOTREXATE [Concomitant]
     Route: 065
     Dates: start: 20120803
  7. ADALIMUMAB [Concomitant]
     Route: 065
     Dates: start: 20120803

REACTIONS (2)
  - Parkinson^s disease [Unknown]
  - Inguinal hernia [Recovered/Resolved]
